FAERS Safety Report 9638984 (Version 2)
Quarter: 2013Q4

REPORT INFORMATION
  Report Type: Spontaneous
  Country: JP (occurrence: JP)
  Receive Date: 20131022
  Receipt Date: 20131206
  Transmission Date: 20140711
  Serious: Yes (Death, Other)
  Sender: FDA-Public Use
  Company Number: JP-OTSUKA-JP-2013-14519

PATIENT
  Age: 57 Year
  Sex: Male
  Weight: 65 kg

DRUGS (4)
  1. BUSULFEX [Suspect]
     Dosage: UNK
     Route: 041
  2. FLUDARABINE PHOSPHATE [Concomitant]
     Dosage: UNK
  3. MELPHALAN [Concomitant]
     Dosage: UNK
  4. METHYLPREDISOLONE [Concomitant]
     Dosage: UNK
     Route: 065

REACTIONS (3)
  - Bronchopulmonary aspergillosis [Unknown]
  - Liver disorder [Unknown]
  - Death [Fatal]
